FAERS Safety Report 7255993-4 (Version None)
Quarter: 2011Q1

REPORT INFORMATION
  Report Type: 
  Country: None (occurrence: None)
  Receive Date: 20110129
  Receipt Date: 20100520
  Transmission Date: 20110831
  Serious: No
  Sender: FDA-Public Use
  Company Number: US-ABBOTT-10P-163-0646143-00

PATIENT
  Age: 55 Year
  Sex: Female

DRUGS (11)
  1. SINGULAIR [Concomitant]
     Indication: SINUS DISORDER
  2. ALLEGRA [Concomitant]
     Indication: SINUS DISORDER
  3. PREVACID [Concomitant]
     Indication: GASTRIC DISORDER
  4. ZETIA [Concomitant]
     Indication: BLOOD CHOLESTEROL
     Route: 048
  5. LEVBID [Concomitant]
     Indication: GASTRIC DISORDER
     Route: 048
  6. PREDNISONE [Concomitant]
     Indication: ARTHRITIS
  7. PILOCARPINE HCL [Concomitant]
     Indication: PRODUCT USED FOR UNKNOWN INDICATION
  8. HUMIRA [Suspect]
     Indication: RHEUMATOID ARTHRITIS
     Dates: start: 20100520
  9. ATARAX [Concomitant]
     Indication: ECZEMA
  10. PLAVIX [Concomitant]
     Indication: PRODUCT USED FOR UNKNOWN INDICATION
  11. ARAVA [Concomitant]
     Indication: RHEUMATOID ARTHRITIS

REACTIONS (3)
  - ERYTHEMA [None]
  - HYPERHIDROSIS [None]
  - NAUSEA [None]
